FAERS Safety Report 18277982 (Version 2)
Quarter: 2020Q4

REPORT INFORMATION
  Report Type: Spontaneous
  Country: LT (occurrence: LT)
  Receive Date: 20200917
  Receipt Date: 20201007
  Transmission Date: 20210113
  Serious: Yes (Death, Hospitalization, Other)
  Sender: FDA-Public Use
  Company Number: LT-JNJFOC-20200903227

PATIENT
  Age: 9 Year
  Sex: Female
  Weight: 39.9 kg

DRUGS (10)
  1. SODIUM CHLORIDE. [Concomitant]
     Active Substance: SODIUM CHLORIDE
     Dosage: 80 MG + 80 ML 0,9% NACL SOLUTION INTRAVENOUSLY OVER 30 MIN; IN TOTAL
     Route: 042
     Dates: start: 20200707, end: 20200707
  2. ONDANSETRON [Concomitant]
     Active Substance: ONDANSETRON
     Dosage: 8 MG TWICE A DAY
     Route: 042
     Dates: start: 20200707, end: 20200707
  3. METYRAPONE [Suspect]
     Active Substance: METYRAPONE
     Dosage: INCREASED TO 3 TABLETS PER DAY
     Route: 048
     Dates: start: 20200728, end: 202008
  4. NIZORAL [Suspect]
     Active Substance: KETOCONAZOLE
     Indication: CORTISOL INCREASED
     Dosage: UNK
     Route: 065
     Dates: start: 202008
  5. PEMBROLIZUMAB. [Suspect]
     Active Substance: PEMBROLIZUMAB
     Indication: ADRENOCORTICAL CARCINOMA
     Dosage: 2ND DOSE; IN TOTAL
     Route: 042
     Dates: start: 20200728, end: 20200728
  6. PEMBROLIZUMAB. [Suspect]
     Active Substance: PEMBROLIZUMAB
     Dosage: 3RD DOSE; IN TOTAL
     Route: 042
     Dates: start: 20200818, end: 20200818
  7. METYRAPONE [Suspect]
     Active Substance: METYRAPONE
     Indication: CORTISOL INCREASED
     Dosage: UNK
     Route: 048
     Dates: end: 20200728
  8. METYRAPONE [Suspect]
     Active Substance: METYRAPONE
     Dosage: INCREASED TO 10 TABLETS PER DAY
     Route: 048
     Dates: start: 202008
  9. TEMOZOLOMIDE. [Suspect]
     Active Substance: TEMOZOLOMIDE
     Indication: ADRENOCORTICAL CARCINOMA
     Dosage: 200 MG IN THE EVENING
     Route: 048
     Dates: start: 20200707, end: 20200707
  10. PEMBROLIZUMAB. [Suspect]
     Active Substance: PEMBROLIZUMAB
     Dosage: 80 MG + 80 ML 0,9% NACL SOLUTION INTRAVENOUSLY OVER 30MIN; IN TOTAL
     Route: 042
     Dates: start: 20200707, end: 20200707

REACTIONS (22)
  - Blood testosterone increased [Not Recovered/Not Resolved]
  - Monocyte percentage abnormal [Unknown]
  - Product use in unapproved indication [Unknown]
  - Mean cell volume abnormal [Unknown]
  - Therapy non-responder [Not Recovered/Not Resolved]
  - Platelet distribution width abnormal [Unknown]
  - Monocyte count abnormal [Unknown]
  - Off label use [Unknown]
  - High density lipoprotein abnormal [Unknown]
  - Lymphocyte percentage abnormal [Unknown]
  - Hyperhidrosis [Unknown]
  - Neutrophil percentage abnormal [Unknown]
  - Red blood cell abnormality [Unknown]
  - Product use in unapproved indication [Unknown]
  - Death [Fatal]
  - Malignant neoplasm progression [Not Recovered/Not Resolved]
  - Cortisol increased [Not Recovered/Not Resolved]
  - Pain [Not Recovered/Not Resolved]
  - Oedema peripheral [Not Recovered/Not Resolved]
  - Neutrophil count abnormal [Unknown]
  - Blood lactate dehydrogenase abnormal [Unknown]
  - Red cell distribution width abnormal [Unknown]

NARRATIVE: CASE EVENT DATE: 2020
